FAERS Safety Report 5204325-1 (Version None)
Quarter: 2007Q1

REPORT INFORMATION
  Report Type: 
  Country: None (occurrence: None)
  Receive Date: 20070110
  Receipt Date: 20060206
  Transmission Date: 20070707
  Serious: No
  Sender: FDA-Public Use
  Company Number: US-BRISTOL-MYERS SQUIBB COMPANY-13283452

PATIENT
  Age: 34 Year
  Sex: Female

DRUGS (6)
  1. ABILIFY [Suspect]
     Indication: BIPOLAR DISORDER
     Route: 048
     Dates: start: 20051001, end: 20060120
  2. ABILIFY [Suspect]
     Indication: POST-TRAUMATIC STRESS DISORDER
     Route: 048
     Dates: start: 20051001, end: 20060120
  3. ABILIFY [Suspect]
     Indication: DISSOCIATION
     Route: 048
     Dates: start: 20051001, end: 20060120
  4. ZOLOFT [Concomitant]
  5. DEPAKOTE [Concomitant]
  6. ATIVAN [Concomitant]

REACTIONS (1)
  - TARDIVE DYSKINESIA [None]
